FAERS Safety Report 6374135-0 (Version None)
Quarter: 2009Q3

REPORT INFORMATION
  Report Type: 
  Country: None (occurrence: None)
  Receive Date: 20090924
  Receipt Date: 20090615
  Transmission Date: 20100115
  Serious: No
  Sender: FDA-Public Use
  Company Number: US-ASTRAZENECA-2009UW15159

PATIENT
  Sex: Female
  Weight: 72.6 kg

DRUGS (1)
  1. SEROQUEL XR [Suspect]
     Route: 048
     Dates: end: 20090615

REACTIONS (3)
  - CARDIAC DISORDER [None]
  - LUNG DISORDER [None]
  - WEIGHT INCREASED [None]
